FAERS Safety Report 7676600-2 (Version None)
Quarter: 2011Q3

REPORT INFORMATION
  Report Type: 
  Country: None (occurrence: None)
  Receive Date: 20110809
  Receipt Date: 20110809
  Transmission Date: 20111222
  Serious: Yes (Death)
  Sender: FDA-Public Use
  Company Number: None

PATIENT
  Age: 76 Year
  Sex: Female
  Weight: 102.7 kg

DRUGS (2)
  1. LINEZOLID [Suspect]
     Indication: PNEUMONIA
     Dosage: 600MG Q12H IV/PO
     Route: 048
     Dates: start: 20110718, end: 20110721
  2. CYMBALTA [Suspect]
     Indication: DEPRESSION
     Dosage: 60MG DAILY PO HOME MED, TAKEN THROUGH
     Route: 048
     Dates: start: 20110718

REACTIONS (6)
  - LEUKOCYTOSIS [None]
  - CARDIOGENIC SHOCK [None]
  - CORONARY ARTERY DISEASE [None]
  - POST PROCEDURAL COMPLICATION [None]
  - PYREXIA [None]
  - SEROTONIN SYNDROME [None]
